FAERS Safety Report 14813911 (Version 1)
Quarter: 2018Q2

REPORT INFORMATION
  Report Type: Spontaneous
  Country: IT (occurrence: IT)
  Receive Date: 20180426
  Receipt Date: 20180426
  Transmission Date: 20180711
  Serious: Yes (Death, Other)
  Sender: FDA-Public Use
  Company Number: IT-CIPLA LTD.-2018IT16773

PATIENT

DRUGS (5)
  1. ETOPOSIDE. [Suspect]
     Active Substance: ETOPOSIDE
     Indication: GLIOBLASTOMA MULTIFORME
     Dosage: 100 MG/MQ, DAY 1-3 EVERY 21 DAYS
     Route: 042
  2. CARBOPLATIN. [Suspect]
     Active Substance: CARBOPLATIN
     Indication: GLIOBLASTOMA MULTIFORME
     Dosage: UNK, AUC 5 DAY 1 EVERY 21 DAYS
     Route: 042
  3. TEMOZOLOMIDE. [Suspect]
     Active Substance: TEMOZOLOMIDE
     Indication: GLIOBLASTOMA MULTIFORME
     Dosage: 75 MG/MQ/QD
     Route: 048
  4. TEMOZOLOMIDE. [Suspect]
     Active Substance: TEMOZOLOMIDE
     Dosage: 300 MG, PER DAY FOR 5 DAYS EVERY 28 DAYS
     Route: 048
  5. TEMOZOLOMIDE. [Suspect]
     Active Substance: TEMOZOLOMIDE
     Dosage: 150 MG, PER DAY, 5 DAYS FOR EVERY 28 DAYS
     Route: 048

REACTIONS (2)
  - Malignant neoplasm progression [Fatal]
  - Disease recurrence [Unknown]
